FAERS Safety Report 24689648 (Version 1)
Quarter: 2024Q4

REPORT INFORMATION
  Report Type: Spontaneous
  Country: US (occurrence: US)
  Receive Date: 20241203
  Receipt Date: 20241203
  Transmission Date: 20250115
  Serious: No
  Sender: LEO PHARM
  Company Number: US-LEO Pharma-375626

PATIENT
  Age: 20 Year
  Sex: Female

DRUGS (1)
  1. ADBRY [Suspect]
     Active Substance: TRALOKINUMAB-LDRM
     Indication: Neurodermatitis
     Dosage: TREATMENT IS ONGOING
     Route: 058
     Dates: start: 202303

REACTIONS (2)
  - Dermatitis atopic [Unknown]
  - Product use in unapproved indication [Unknown]
